FAERS Safety Report 4335722-4 (Version None)
Quarter: 2004Q1

REPORT INFORMATION
  Report Type: 
  Country: None (occurrence: None)
  Receive Date: 20040329
  Receipt Date: 20031120
  Transmission Date: 20041129
  Serious: No
  Sender: FDA-Public Use
  Company Number: USA031153081

PATIENT
  Age: 37 Year
  Sex: Male

DRUGS (1)
  1. STRATTERA [Suspect]
     Dosage: 20  MG/ 2 DAY
     Route: 048
     Dates: start: 20031101

REACTIONS (1)
  - URINE ABNORMALITY [None]
